FAERS Safety Report 18548507 (Version 1)
Quarter: 2020Q4

REPORT INFORMATION
  Report Type: Spontaneous
  Country: US (occurrence: US)
  Receive Date: 20201125
  Receipt Date: 20201125
  Transmission Date: 20210114
  Serious: Yes (Hospitalization, Other)
  Sender: FDA-Public Use
  Company Number: US-JNJFOC-20201135512

PATIENT

DRUGS (1)
  1. REMICADE [Suspect]
     Active Substance: INFLIXIMAB
     Indication: RHEUMATOID ARTHRITIS
     Route: 042
     Dates: start: 201808

REACTIONS (10)
  - Renal impairment [Unknown]
  - Post procedural complication [Recovering/Resolving]
  - Surgery [Unknown]
  - Post procedural swelling [Recovering/Resolving]
  - Spinal operation [Unknown]
  - Incorrect dose administered [Unknown]
  - Cardiac operation [Unknown]
  - Knee arthroplasty [Unknown]
  - Hepatic enzyme abnormal [Unknown]
  - Off label use [Unknown]

NARRATIVE: CASE EVENT DATE: 201808
